FAERS Safety Report 14982408 (Version 1)
Quarter: 2018Q2

REPORT INFORMATION
  Report Type: Other
  Country: CA (occurrence: CA)
  Receive Date: 20180607
  Receipt Date: 20180607
  Transmission Date: 20180711
  Serious: Yes (Hospitalization, Other)
  Sender: FDA-Public Use
  Company Number: CA-APOTEX-2018AP015186

PATIENT
  Sex: Male
  Weight: 2 kg

DRUGS (7)
  1. HEPARIN CALCIUM [Suspect]
     Active Substance: HEPARIN CALCIUM
     Indication: THROMBOSIS
     Dosage: UNK
     Route: 064
  2. SUBOXONE [Suspect]
     Active Substance: BUPRENORPHINE HYDROCHLORIDE\NALOXONE HYDROCHLORIDE
     Dosage: UNK
     Route: 063
  3. NICOTINE. [Suspect]
     Active Substance: NICOTINE
     Indication: PRODUCT USED FOR UNKNOWN INDICATION
     Dosage: 10 DF, TEN TIMES A DAY
     Route: 063
  4. NICOTINE. [Suspect]
     Active Substance: NICOTINE
     Dosage: 10 DF, TEN TIMES A DAY
     Route: 064
  5. VITAMINS                           /00067501/ [Suspect]
     Active Substance: VITAMINS
     Indication: PRODUCT USED FOR UNKNOWN INDICATION
     Dosage: UNK
     Route: 064
  6. SUBUTEX [Suspect]
     Active Substance: BUPRENORPHINE HYDROCHLORIDE
     Indication: PRODUCT USED FOR UNKNOWN INDICATION
     Dosage: 16 MG, QD
     Route: 064
  7. SUBOXONE [Suspect]
     Active Substance: BUPRENORPHINE HYDROCHLORIDE\NALOXONE HYDROCHLORIDE
     Indication: DRUG DEPENDENCE
     Dosage: 16 MG, QD
     Route: 064

REACTIONS (4)
  - Maternal condition affecting foetus [Unknown]
  - Drug withdrawal syndrome neonatal [Unknown]
  - Maternal exposure during breast feeding [Unknown]
  - Foetal exposure during pregnancy [Unknown]
